FAERS Safety Report 15233644 (Version 2)
Quarter: 2018Q3

REPORT INFORMATION
  Report Type: Spontaneous
  Country: BR (occurrence: BR)
  Receive Date: 20180802
  Receipt Date: 20180820
  Transmission Date: 20181010
  Serious: Yes (Other)
  Sender: FDA-Public Use
  Company Number: BR-009507513-1807BRA012556

PATIENT
  Age: 32 Year
  Sex: Female
  Weight: 76 kg

DRUGS (1)
  1. NUVARING [Suspect]
     Active Substance: ETHINYL ESTRADIOL\ETONOGESTREL
     Indication: CONTRACEPTION
     Dosage: 1 RING, 3 WEEKS WITH THE VAGINAL RING AND 1 WEEK OF PAUSE
     Route: 067
     Dates: start: 201101

REACTIONS (4)
  - Device breakage [Recovered/Resolved]
  - Vulvovaginal injury [Not Recovered/Not Resolved]
  - Medical device site discomfort [Recovered/Resolved]
  - Device difficult to use [Recovered/Resolved]

NARRATIVE: CASE EVENT DATE: 20180724
